FAERS Safety Report 14440572 (Version 1)
Quarter: 2018Q1

REPORT INFORMATION
  Report Type: Spontaneous
  Country: US (occurrence: US)
  Receive Date: 20180125
  Receipt Date: 20180125
  Transmission Date: 20180509
  Serious: Yes (Other)
  Sender: FDA-Public Use
  Company Number: US-MYLANLABS-2018M1005178

PATIENT
  Age: 65 Year
  Sex: Male

DRUGS (8)
  1. PREDNISONE. [Suspect]
     Active Substance: PREDNISONE
     Dosage: RECEIVED SECOND ROUND IN AUGUST 2015
     Route: 065
     Dates: start: 201508
  2. PREDNISONE. [Suspect]
     Active Substance: PREDNISONE
     Indication: BLASTIC PLASMACYTOID DENDRITIC CELL NEOPLASIA
     Dosage: RECEIVED FIRST ROUND IN JULY 2015
     Route: 065
     Dates: start: 201507
  3. VINCRISTINE [Suspect]
     Active Substance: VINCRISTINE
     Indication: BLASTIC PLASMACYTOID DENDRITIC CELL NEOPLASIA
     Dosage: RECEIVED FIRST ROUND IN JULY 2015
     Route: 065
     Dates: start: 201507
  4. CYCLOPHOSPHAMIDE. [Suspect]
     Active Substance: CYCLOPHOSPHAMIDE
     Dosage: RECEIVED SECOND ROUND IN AUGUST 2015
     Route: 065
     Dates: start: 201508
  5. DOXORUBICIN [Suspect]
     Active Substance: DOXORUBICIN
     Indication: BLASTIC PLASMACYTOID DENDRITIC CELL NEOPLASIA
     Dosage: RECEIVED FIRST ROUND IN JULY 2015
     Route: 065
     Dates: start: 201507
  6. DOXORUBICIN [Suspect]
     Active Substance: DOXORUBICIN
     Dosage: RECEIVED SECOND ROUND IN AUGUST 2015
     Route: 065
     Dates: start: 201508
  7. CYCLOPHOSPHAMIDE. [Suspect]
     Active Substance: CYCLOPHOSPHAMIDE
     Indication: BLASTIC PLASMACYTOID DENDRITIC CELL NEOPLASIA
     Dosage: RECEIVED FIRST ROUND IN JULY 2015
     Route: 065
     Dates: start: 201507
  8. VINCRISTINE [Suspect]
     Active Substance: VINCRISTINE
     Dosage: RECEIVED SECOND ROUND IN AUGUST 2015
     Route: 065
     Dates: start: 201508

REACTIONS (2)
  - Drug resistance [Unknown]
  - Hyperglycaemia [Unknown]
